FAERS Safety Report 5909554 (Version 2)
Quarter: 2013Q2

REPORT INFORMATION
  Report Type: Spontaneous
  Country: GB (occurrence: None)
  Receive Date: 20051017
  Receipt Date: 20130429
  Transmission Date: 20140414
  Serious: Yes (Other)
  Sender: FDA-Public Use
  Company Number: 2005US-00877

PATIENT
  Age: 46 Year
  Sex: Male

DRUGS (7)
  1. GANCICLOVIR SODIUM [Suspect]
     Indication: CYTOMEGALOVIRUS INFECTION
     Route: 048
  2. GANCICLOVIR SODIUM [Suspect]
     Route: 048
  3. GANCICLOVIR [Suspect]
     Indication: CYTOMEGALOVIRUS INFECTION
     Route: 042
  4. VALGANCICLOVIR [Suspect]
     Indication: CYTOMEGALOVIRUS INFECTION
     Route: 048
  5. FOSCAMET (FOSCAMET) [Concomitant]
  6. MYCOPHENOLATE MOFETIL (MYCOPHENOLATE MOFETIL) [Concomitant]
  7. TACROLIMUS (TACROLIMUS) [Concomitant]

REACTIONS (3)
  - NEUTROPHIL PELGER-HUET ANOMALY PRESENT [None]
  - NEUTROPENIA [None]
  - BONE MARROW FAILURE [None]
